FAERS Safety Report 7701608-8 (Version None)
Quarter: 2011Q3

REPORT INFORMATION
  Report Type: 
  Country: None (occurrence: None)
  Receive Date: 20110822
  Receipt Date: 20110816
  Transmission Date: 20111222
  Serious: Yes (Disabling, Other)
  Sender: FDA-Public Use
  Company Number: CR-PFIZER INC-2011189596

PATIENT
  Age: 26 Year
  Sex: Male

DRUGS (4)
  1. ZOPICLONE [Concomitant]
     Dosage: UNK
     Route: 048
     Dates: start: 20110101
  2. LORATADINE [Concomitant]
     Dosage: UNK
     Route: 048
     Dates: start: 20050101
  3. ALPRAZOLAM [Concomitant]
     Dosage: UNK
     Route: 048
     Dates: start: 20110801
  4. GEODON [Suspect]
     Dosage: 40 MG, 1X/DAY
     Route: 048
     Dates: start: 20110801

REACTIONS (5)
  - SOMNOLENCE [None]
  - ASTHENIA [None]
  - ATTENTION DEFICIT/HYPERACTIVITY DISORDER [None]
  - DIZZINESS [None]
  - BRADYPHRENIA [None]
